FAERS Safety Report 18949781 (Version 1)
Quarter: 2021Q1

REPORT INFORMATION
  Report Type: Spontaneous
  Country: US (occurrence: US)
  Receive Date: 20210227
  Receipt Date: 20210227
  Transmission Date: 20210420
  Serious: No
  Sender: FDA-Public Use
  Company Number: US-ROCHE-2638144

PATIENT
  Sex: Female

DRUGS (2)
  1. XOLAIR [Suspect]
     Active Substance: OMALIZUMAB
     Indication: IDIOPATHIC URTICARIA
     Route: 058
     Dates: start: 20150401
  2. CYCLOSPORINE. [Concomitant]
     Active Substance: CYCLOSPORINE
     Dates: start: 20200615

REACTIONS (2)
  - Pain [Unknown]
  - Swelling face [Unknown]
